FAERS Safety Report 5232598-8 (Version None)
Quarter: 2007Q1

REPORT INFORMATION
  Report Type: 
  Country: None (occurrence: None)
  Receive Date: 20070206
  Receipt Date: 20070206
  Transmission Date: 20070707
  Serious: Yes (Hospitalization)
  Sender: FDA-Public Use
  Company Number: None

PATIENT
  Age: 61 Year
  Sex: Male
  Weight: 56.246 kg

DRUGS (19)
  1. DEXAMETHASONE 4MG TAB [Suspect]
     Indication: MULTIPLE MYELOMA
     Dosage: 10 TABS (40 MG) EVERY DAY PO
     Route: 048
     Dates: start: 20061006, end: 20061009
  2. DEXAMETHASONE 4MG TAB [Suspect]
     Indication: MULTIPLE MYELOMA
     Dosage: 10 TABS (40 MG) EVERY DAY PO
     Route: 048
     Dates: start: 20061014, end: 20061017
  3. DEXAMETHASONE 4MG TAB [Suspect]
     Indication: MULTIPLE MYELOMA
     Dosage: 10 TABS (40 MG) EVERY DAY PO
     Route: 048
     Dates: start: 20061022, end: 20061025
  4. MAGNESIUM OXIDE [Concomitant]
  5. LANTUS [Concomitant]
  6. WARFARIN SODIUM [Concomitant]
  7. TRAVOPROST [Concomitant]
  8. METOPROLOL SUCCINATE [Concomitant]
  9. ASPIRIN [Concomitant]
  10. CITALOPRAM HYDROBROMIDE [Concomitant]
  11. BISACODYL [Concomitant]
  12. BRIMONIDINE TARTRATE [Concomitant]
  13. DIPHENHYDRAMINE HCL [Concomitant]
  14. DOCUSATE [Concomitant]
  15. FERROUS SULFATE TAB [Concomitant]
  16. HYDRALAZINE HCL [Concomitant]
  17. NOVOLOG [Concomitant]
  18. LORAZEPAM [Concomitant]
  19. THALIDOMIDE [Concomitant]

REACTIONS (11)
  - BONE DISORDER [None]
  - CONSTIPATION [None]
  - DIABETES MELLITUS INADEQUATE CONTROL [None]
  - HOMICIDAL IDEATION [None]
  - HYPERGLYCAEMIA [None]
  - INAPPROPRIATE SCHEDULE OF DRUG ADMINISTRATION [None]
  - MENTAL STATUS CHANGES [None]
  - OEDEMA PERIPHERAL [None]
  - PARANOIA [None]
  - PSYCHOTIC DISORDER [None]
  - TREATMENT NONCOMPLIANCE [None]
